FAERS Safety Report 18609413 (Version 1)
Quarter: 2020Q4

REPORT INFORMATION
  Report Type: Spontaneous
  Country: CH (occurrence: CH)
  Receive Date: 20201214
  Receipt Date: 20201214
  Transmission Date: 20210114
  Serious: Yes (Life-Threatening, Other)
  Sender: FDA-Public Use
  Company Number: CH-GLAXOSMITHKLINE-CH2020244251

PATIENT
  Age: 60 Year
  Sex: Male
  Weight: 58.5 kg

DRUGS (9)
  1. LIDOCAIN [Suspect]
     Active Substance: LIDOCAINE
     Indication: CATHETERISATION CARDIAC
     Dosage: UNK
     Route: 065
     Dates: start: 20201012, end: 2020
  2. TRIUMEQ [Concomitant]
     Active Substance: ABACAVIR SULFATE\DOLUTEGRAVIR SODIUM\LAMIVUDINE
     Indication: PRODUCT USED FOR UNKNOWN INDICATION
     Dosage: UNK
     Route: 065
  3. KEPPRA [Concomitant]
     Active Substance: LEVETIRACETAM
     Indication: PRODUCT USED FOR UNKNOWN INDICATION
     Dosage: UNK
     Route: 065
  4. PROPOFOL. [Suspect]
     Active Substance: PROPOFOL
     Indication: CATHETERISATION CARDIAC
     Dosage: UNK
     Route: 065
     Dates: start: 20201012, end: 2020
  5. REMIFENTANIL [Suspect]
     Active Substance: REMIFENTANIL
     Indication: CATHETERISATION CARDIAC
     Dosage: UNK
     Route: 065
     Dates: start: 20201012, end: 2020
  6. AMLODIPIN [Concomitant]
     Active Substance: AMLODIPINE BESYLATE
     Indication: PRODUCT USED FOR UNKNOWN INDICATION
     Dosage: UNK
     Route: 065
  7. ZINACEF [Suspect]
     Active Substance: CEFUROXIME SODIUM
     Indication: CATHETERISATION CARDIAC
     Dosage: UNK
     Route: 065
     Dates: start: 20201012, end: 2020
  8. HEPARIN SODIUM. [Suspect]
     Active Substance: HEPARIN SODIUM
     Indication: CATHETERISATION CARDIAC
     Dosage: UNK
     Route: 065
     Dates: start: 20201012, end: 2020
  9. PANTOZOL [Concomitant]
     Active Substance: PANTOPRAZOLE SODIUM
     Indication: PRODUCT USED FOR UNKNOWN INDICATION
     Dosage: UNK
     Route: 065

REACTIONS (2)
  - Cardiac arrest [Recovering/Resolving]
  - Anaphylactic shock [Recovering/Resolving]

NARRATIVE: CASE EVENT DATE: 20201012
